FAERS Safety Report 4758403-1 (Version None)
Quarter: 2005Q3

REPORT INFORMATION
  Report Type: 
  Country: None (occurrence: None)
  Receive Date: 20050826
  Receipt Date: 20050524
  Transmission Date: 20060218
  Serious: Yes (Disabling)
  Sender: FDA-Public Use
  Company Number: WAES 0505USA02814

PATIENT
  Age: 67 Year
  Sex: Female

DRUGS (6)
  1. ZETIA [Suspect]
     Indication: BLOOD CHOLESTEROL INCREASED
     Dosage: 10 MG/DAILY/PO
     Route: 048
     Dates: start: 20041224, end: 20050523
  2. ZETIA [Suspect]
     Indication: BLOOD CHOLESTEROL INCREASED
     Dosage: 10 MG/DAILY/PO
     Route: 048
     Dates: start: 20050601, end: 20050601
  3. MICARDIS [Concomitant]
  4. TOPROL-XL [Concomitant]
  5. CALCIUM GLUCONATE [Concomitant]
  6. VITAMINS [Concomitant]

REACTIONS (2)
  - ARTHRALGIA [None]
  - HYPERSENSITIVITY [None]
